FAERS Safety Report 6802688-4 (Version None)
Quarter: 2010Q2

REPORT INFORMATION
  Report Type: 
  Country: None (occurrence: None)
  Receive Date: 20100628
  Receipt Date: 20100625
  Transmission Date: 20101027
  Serious: No
  Sender: FDA-Public Use
  Company Number: US-ROXANE LABORATORIES, INC.-2010-RO-00766RO

PATIENT
  Sex: Male
  Weight: 94 kg

DRUGS (9)
  1. PREDNISONE [Suspect]
     Dates: start: 20100607, end: 20100614
  2. DIGOXIN [Suspect]
     Indication: HYPERTENSION
  3. NUVIGIL [Suspect]
     Indication: SOMNOLENCE
     Dosage: 150 MG
     Route: 048
     Dates: start: 20090901
  4. CARDIZEM [Concomitant]
     Indication: ARRHYTHMIA
     Dates: start: 20060101
  5. LIPITOR [Concomitant]
     Indication: HYPERCHOLESTEROLAEMIA
  6. WARFARIN [Concomitant]
     Indication: ANTICOAGULANT THERAPY
  7. HYDROCHLOROTHIAZIDE [Concomitant]
     Indication: HYPERTENSION
  8. POTASSIUM [Concomitant]
     Indication: HYPOKALAEMIA
  9. ASPIRIN [Concomitant]
     Indication: PROPHYLAXIS

REACTIONS (2)
  - DRY MOUTH [None]
  - DYSPHONIA [None]
